FAERS Safety Report 15481253 (Version 2)
Quarter: 2018Q4

REPORT INFORMATION
  Report Type: Spontaneous
  Country: US (occurrence: US)
  Receive Date: 20181010
  Receipt Date: 20181109
  Transmission Date: 20190205
  Serious: No
  Sender: FDA-Public Use
  Company Number: US-ASTRAZENECA-2018SF17957

PATIENT
  Sex: Female
  Weight: 70.3 kg

DRUGS (2)
  1. PULMICORT FLEXHALER [Suspect]
     Active Substance: BUDESONIDE
     Indication: ASTHMA
     Route: 055
  2. ALBUTERAL  INHALER [Concomitant]

REACTIONS (6)
  - Malaise [Recovered/Resolved]
  - Intentional device misuse [Not Recovered/Not Resolved]
  - Circumstance or information capable of leading to medication error [Not Recovered/Not Resolved]
  - Device malfunction [Unknown]
  - Asthma [Not Recovered/Not Resolved]
  - Product dose omission [Not Recovered/Not Resolved]
